FAERS Safety Report 9509489 (Version 1)
Quarter: 2013Q3

REPORT INFORMATION
  Report Type: Spontaneous
  Country: US (occurrence: US)
  Receive Date: 20130909
  Receipt Date: 20130909
  Transmission Date: 20140515
  Serious: No
  Sender: FDA-Public Use
  Company Number: US-BRISTOL-MYERS SQUIBB COMPANY-18950550

PATIENT
  Age: 76 Year
  Sex: Female
  Weight: 72.11 kg

DRUGS (5)
  1. ABILIFY TABS 2 MG [Suspect]
  2. AMLODIPINE [Concomitant]
  3. LISINOPRIL [Concomitant]
  4. KLOR-CON [Concomitant]
  5. SYNTHROID [Concomitant]

REACTIONS (1)
  - Drug dose omission [Unknown]
